APPROVED DRUG PRODUCT: DESLORATADINE
Active Ingredient: DESLORATADINE
Strength: 5MG
Dosage Form/Route: TABLET, ORALLY DISINTEGRATING;ORAL
Application: A078367 | Product #002
Applicant: DOCTOR REDDYS LABORATORIES LTD
Approved: Jul 12, 2010 | RLD: No | RS: Yes | Type: RX